FAERS Safety Report 8342031-5 (Version None)
Quarter: 2012Q2

REPORT INFORMATION
  Report Type: 
  Country: None (occurrence: None)
  Receive Date: 20120507
  Receipt Date: 20120503
  Transmission Date: 20120825
  Serious: Yes (Other)
  Sender: FDA-Public Use
  Company Number: US-PFIZER INC-2012017633

PATIENT
  Sex: Female

DRUGS (1)
  1. CHANTIX [Suspect]
     Indication: SMOKING CESSATION THERAPY
     Dosage: UNK
     Route: 048

REACTIONS (7)
  - DRUG WITHDRAWAL SYNDROME [None]
  - INSOMNIA [None]
  - HOT FLUSH [None]
  - IRRITABILITY [None]
  - CRYING [None]
  - WITHDRAWAL SYNDROME [None]
  - FEELING ABNORMAL [None]
